FAERS Safety Report 25403041 (Version 4)
Quarter: 2025Q3

REPORT INFORMATION
  Report Type: Report from Study
  Country: US (occurrence: US)
  Receive Date: 20250605
  Receipt Date: 20250908
  Transmission Date: 20251020
  Serious: Yes (Other)
  Sender: SANOFI AVENTIS
  Company Number: US-SA-2025SA158737

PATIENT
  Age: 66 Year
  Sex: Male
  Weight: 139.09 kg

DRUGS (1)
  1. DUPILUMAB [Suspect]
     Active Substance: DUPILUMAB
     Indication: Chronic obstructive pulmonary disease
     Dosage: 300 MG, QOW
     Route: 058

REACTIONS (4)
  - Atrial fibrillation [Unknown]
  - Chest pain [Unknown]
  - Illness [Unknown]
  - Therapeutic response unexpected [Unknown]
